FAERS Safety Report 21827550 (Version 1)
Quarter: 2023Q1

REPORT INFORMATION
  Report Type: Report from Study
  Country: US (occurrence: US)
  Receive Date: 20230106
  Receipt Date: 20230106
  Transmission Date: 20230417
  Serious: Yes (Hospitalization, Other)
  Sender: FDA-Public Use
  Company Number: US-ABBVIE-4259607

PATIENT
  Sex: Female

DRUGS (20)
  1. DUOPA [Suspect]
     Active Substance: CARBIDOPA\LEVODOPA
     Indication: Product used for unknown indication
     Route: 050
  2. DUOPA [Suspect]
     Active Substance: CARBIDOPA\LEVODOPA
  3. AZILECT [Concomitant]
     Active Substance: RASAGILINE MESYLATE
     Indication: Product used for unknown indication
     Dosage: QAM?FORM STRENGTH: 1 TABLET
     Route: 048
  4. LEVOTHYROXINE [Concomitant]
     Active Substance: LEVOTHYROXINE
     Indication: Product used for unknown indication
     Dosage: FIVE TIMES A WEEK?112MCG?FORM STRENGTH: 1 TABLET
     Route: 048
  5. TORVASTATIN [Concomitant]
     Indication: Product used for unknown indication
     Dosage: QPM?FORM STRENGTH: 1 TABLET
     Route: 048
  6. FLUOCINONIDE [Concomitant]
     Active Substance: FLUOCINONIDE
     Indication: Product used for unknown indication
     Dosage: 1 APPLICATION DAILY
     Route: 061
  7. CALMOSEPTINE [Concomitant]
     Active Substance: MENTHOL\ZINC OXIDE
     Indication: Product used for unknown indication
     Dosage: 1 APPLICATION DAILY? 0.44-20.6% OINT
     Route: 061
  8. EZETIMIBE [Concomitant]
     Active Substance: EZETIMIBE
     Indication: Product used for unknown indication
     Dosage: DAILY?FORM STRENGTH: 1 TABLET
     Route: 048
  9. METFORMIN HYDROCHLORIDE [Concomitant]
     Active Substance: METFORMIN HYDROCHLORIDE
     Indication: Product used for unknown indication
     Dosage: QAM?FORM STRENGTH: 1 TABLET
     Route: 048
  10. UNISOM SLEEPTABS [Concomitant]
     Active Substance: DOXYLAMINE SUCCINATE
     Indication: Product used for unknown indication
     Dosage: QPM?FORM STRENGTH: 0.5 TABLET
     Route: 048
  11. MELATONIN [Concomitant]
     Active Substance: MELATONIN
     Indication: Product used for unknown indication
     Dosage: QPM?FORM STRENGTH: 1 CAPSULE
     Route: 048
  12. ALPRAZOLAM [Concomitant]
     Active Substance: ALPRAZOLAM
     Indication: Product used for unknown indication
     Dosage: TWICE A DAY?FORM STRENGTH: 1 TABLET
     Route: 048
  13. AMANTADINE [Concomitant]
     Active Substance: AMANTADINE
     Indication: Product used for unknown indication
     Dosage: TWICE A DAY?FORM STRENGTH: 1 CAPSULE
     Route: 048
  14. VITAMIN D3 [Concomitant]
     Active Substance: CHOLECALCIFEROL
     Indication: Product used for unknown indication
     Dosage: 10MCG?FORM STRENGTH: 2000 UNIT
     Route: 048
  15. KYNMOBI [Concomitant]
     Active Substance: APOMORPHINE HYDROCHLORIDE
     Indication: Product used for unknown indication
     Dosage: 1 DOSE DAILY?10MG FILM
     Route: 048
  16. CLOPIDOGREL [Concomitant]
     Active Substance: CLOPIDOGREL BISULFATE
     Indication: Product used for unknown indication
     Dosage: DAILY?FORM STRENGTH: 1 TABLET
     Route: 048
  17. LOSARTAN [Concomitant]
     Active Substance: LOSARTAN
     Indication: Product used for unknown indication
     Dosage: DAILY?FORM STRENGTH: 1 TABLET
     Route: 048
  18. MIRTAZAPINE [Concomitant]
     Active Substance: MIRTAZAPINE
     Indication: Product used for unknown indication
     Dosage: QPM?FORM STRENGTH: 1 TABLET
     Route: 048
  19. ACETAMINOPHEN [Concomitant]
     Active Substance: ACETAMINOPHEN
     Indication: Product used for unknown indication
     Dosage: AS NEEDED?FORM STRENGTH: 1 TABLET
     Route: 048
  20. CARBIDOPA LEVODOPA [Concomitant]
     Active Substance: CARBIDOPA\LEVODOPA
     Indication: Product used for unknown indication
     Dosage: AS DIRECTED?25-100MG?FORM STRENGTH: 1 TABLET
     Route: 048

REACTIONS (5)
  - Surgery [Unknown]
  - Diabetes mellitus [Unknown]
  - Peripheral swelling [Unknown]
  - Post procedural haemorrhage [Unknown]
  - Blood potassium decreased [Unknown]
